FAERS Safety Report 12819626 (Version 1)
Quarter: 2016Q4

REPORT INFORMATION
  Report Type: Spontaneous
  Country: US (occurrence: US)
  Receive Date: 20161006
  Receipt Date: 20161006
  Transmission Date: 20170207
  Serious: No
  Sender: FDA-Public Use
  Company Number: None

PATIENT
  Age: 63 Year
  Sex: Male
  Weight: 102.15 kg

DRUGS (1)
  1. BUTRANS [Suspect]
     Active Substance: BUPRENORPHINE
     Indication: PAIN
     Dosage: ?          QUANTITY:2 PATCH(ES);OTHER FREQUENCY:WEEKLY;?
     Route: 062
     Dates: start: 20160828, end: 20161006

REACTIONS (4)
  - Product quality issue [None]
  - Application site erythema [None]
  - Application site rash [None]
  - Application site pruritus [None]

NARRATIVE: CASE EVENT DATE: 20160828
